FAERS Safety Report 7860273-X (Version None)
Quarter: 2011Q4

REPORT INFORMATION
  Report Type: 
  Country: None (occurrence: None)
  Receive Date: 20111027
  Receipt Date: 20111019
  Transmission Date: 20120403
  Serious: Yes (Hospitalization)
  Sender: FDA-Public Use
  Company Number: TH-ROCHE-1003513

PATIENT
  Sex: Female
  Weight: 62.2 kg

DRUGS (5)
  1. PREDNISONE [Suspect]
     Indication: B-CELL LYMPHOMA
     Route: 048
     Dates: start: 20110922
  2. CYCLOPHOSPHAMIDE [Suspect]
     Indication: B-CELL LYMPHOMA
     Route: 042
     Dates: start: 20110922
  3. VINCRISTINE [Suspect]
     Indication: B-CELL LYMPHOMA
     Route: 042
     Dates: start: 20110922
  4. DOXORUBICIN HYDROCHLORIDE [Suspect]
     Indication: B-CELL LYMPHOMA
     Route: 042
     Dates: start: 20110922
  5. MABTHERA [Suspect]
     Indication: B-CELL LYMPHOMA
     Dosage: 1.28 MG/ML
     Route: 042
     Dates: start: 20110922

REACTIONS (1)
  - UPPER GASTROINTESTINAL HAEMORRHAGE [None]
